FAERS Safety Report 9132282 (Version 1)
Quarter: 2013Q1

REPORT INFORMATION
  Report Type: Spontaneous
  Country: GB (occurrence: GB)
  Receive Date: 20130107
  Receipt Date: 20130107
  Transmission Date: 20140127
  Serious: Yes (Life-Threatening, Hospitalization)
  Sender: FDA-Public Use
  Company Number: PHHY2013GB001170

PATIENT
  Age: 34 Year
  Sex: Female

DRUGS (12)
  1. SUMATRIPTAN [Suspect]
     Dosage: 6 MG, BID
     Route: 058
  2. SERTRALINE [Suspect]
     Dosage: 50 MG, BID
     Route: 048
  3. PREGABALIN [Suspect]
     Dosage: 150 MG, BID
     Route: 048
  4. DOMPERIDONE [Suspect]
     Dosage: 10 MG, TID
     Route: 048
  5. ONDANSETRON [Suspect]
     Dosage: 8 MG, TID
     Route: 048
  6. OMEPRAZOLE [Concomitant]
     Dosage: 20 MG, QD
     Route: 048
  7. NAPROXEN [Concomitant]
     Dosage: 250 MG, 5 DOSES
     Route: 048
  8. LORATADINE [Concomitant]
     Dosage: 10 MG, QD
     Route: 048
  9. BACLOFEN [Concomitant]
     Dosage: 10 MG, 5 DOSES A DAY
     Route: 048
  10. LAMOTRIGINE [Concomitant]
     Dosage: 25 MG, BID
     Route: 048
     Dates: start: 20121203
  11. DIHYDROERGOTAMINE [Concomitant]
  12. VERAPAMIL [Concomitant]
     Dosage: 360 MG, TID

REACTIONS (2)
  - Atrioventricular block complete [Not Recovered/Not Resolved]
  - Syncope [Unknown]
